FAERS Safety Report 7457546-1 (Version None)
Quarter: 2011Q1

REPORT INFORMATION
  Report Type: 
  Country: None (occurrence: None)
  Receive Date: 20110302
  Receipt Date: 20101112
  Transmission Date: 20110831
  Serious: Yes (Death, Other)
  Sender: FDA-Public Use
  Company Number: 163-21880-10111822

PATIENT
  Age: 67 Year
  Sex: Female

DRUGS (12)
  1. FENTANYL [Concomitant]
  2. ZOFRAN [Concomitant]
  3. DILAUDID [Concomitant]
  4. ELAVIL [Concomitant]
  5. REVLIMID [Suspect]
     Indication: MULTIPLE MYELOMA
     Dosage: 15 MG, QOD 21D/28D, PO
     Route: 048
     Dates: start: 20090501, end: 20090701
  6. DECADRON [Concomitant]
  7. ZOLOFT [Concomitant]
  8. WARFARIN (WARFARIN) [Concomitant]
  9. ALBUTEROL [Concomitant]
  10. ZOCOR [Concomitant]
  11. LASIX [Concomitant]
  12. NORVASC [Concomitant]

REACTIONS (2)
  - BONE MARROW FAILURE [None]
  - DEATH [None]
